FAERS Safety Report 14112382 (Version 1)
Quarter: 2017Q4

REPORT INFORMATION
  Report Type: Spontaneous
  Country: US (occurrence: US)
  Receive Date: 20171020
  Receipt Date: 20171020
  Transmission Date: 20180321
  Serious: No
  Sender: FDA-Public Use
  Company Number: US-PRESTIGE BRANDS -2031035

PATIENT
  Age: 52 Year
  Sex: Female

DRUGS (1)
  1. MONISTAT 7 COMBINATION PACK TRIPLE ACTION [Suspect]
     Active Substance: MICONAZOLE NITRATE
     Indication: VULVOVAGINAL MYCOTIC INFECTION
     Route: 067
     Dates: start: 20161114, end: 20161115

REACTIONS (11)
  - Skin disorder [Not Recovered/Not Resolved]
  - Musculoskeletal stiffness [Not Recovered/Not Resolved]
  - Vulvovaginal pain [Not Recovered/Not Resolved]
  - Skin discolouration [Not Recovered/Not Resolved]
  - Hypersensitivity [Not Recovered/Not Resolved]
  - Dysuria [Not Recovered/Not Resolved]
  - Vulvovaginal burning sensation [Not Recovered/Not Resolved]
  - Tenderness [Not Recovered/Not Resolved]
  - Sleep disorder [Not Recovered/Not Resolved]
  - Vulvovaginal discomfort [Not Recovered/Not Resolved]
  - Vulvovaginal swelling [Not Recovered/Not Resolved]

NARRATIVE: CASE EVENT DATE: 20161114
